FAERS Safety Report 15412085 (Version 2)
Quarter: 2018Q3

REPORT INFORMATION
  Report Type: Spontaneous
  Country: US (occurrence: US)
  Receive Date: 20180921
  Receipt Date: 20180921
  Transmission Date: 20181010
  Serious: No
  Sender: FDA-Public Use
  Company Number: US-RECKITT BENCKISER HEALTHCARE INT LIMITED-RB-96668-2017

PATIENT
  Age: 57 Year
  Sex: Female

DRUGS (2)
  1. MUCINEX [Suspect]
     Active Substance: GUAIFENESIN
     Indication: PRODUCT USED FOR UNKNOWN INDICATION
     Dosage: UNK, PATIENT TOOK PRODUCT FIRST ON 28?AUG?2017 AND ON 29?AUG?2017
     Route: 065
     Dates: start: 20170828
  2. MUCINEX [Suspect]
     Active Substance: GUAIFENESIN
     Dosage: UNK, PATIENT TOOK PRODUCT FIRST ON 28?AUG?2017 AND ON 29?AUG?2017
     Route: 065
     Dates: start: 20170829

REACTIONS (1)
  - Nightmare [Unknown]

NARRATIVE: CASE EVENT DATE: 20170828
